FAERS Safety Report 6840260-0 (Version None)
Quarter: 2010Q3

REPORT INFORMATION
  Report Type: 
  Country: None (occurrence: None)
  Receive Date: 20100714
  Receipt Date: 20100709
  Transmission Date: 20110219
  Serious: Yes (Death, Other)
  Sender: FDA-Public Use
  Company Number: PHHY2010US45162

PATIENT
  Age: 65 Year
  Sex: Male

DRUGS (3)
  1. CICLOSPORIN [Suspect]
     Indication: LIVER TRANSPLANT
  2. MYCOPHENOLATE MOFETIL [Suspect]
  3. CORTICOSTEROIDS [Concomitant]

REACTIONS (5)
  - EYELID PTOSIS [None]
  - HEADACHE [None]
  - PYREXIA [None]
  - SURGERY [None]
  - ZYGOMYCOSIS [None]
